FAERS Safety Report 11050402 (Version 1)
Quarter: 2015Q2

REPORT INFORMATION
  Report Type: Report from Study
  Country: CA (occurrence: CA)
  Receive Date: 20150421
  Receipt Date: 20150421
  Transmission Date: 20150821
  Serious: Yes (Other)
  Sender: FDA-Public Use
  Company Number: CA-ASTRAZENECA-2015SE34695

PATIENT
  Age: 74 Year
  Sex: Female

DRUGS (12)
  1. TYLENOL [Concomitant]
     Active Substance: ACETAMINOPHEN
  2. DENOSUMAB [Suspect]
     Active Substance: DENOSUMAB
     Indication: OSTEOPOROSIS
     Route: 058
  3. ATENOLOL. [Concomitant]
     Active Substance: ATENOLOL
  4. ZOMIG [Suspect]
     Active Substance: ZOLMITRIPTAN
     Indication: MIGRAINE
     Route: 048
  5. VITAMIN D [Concomitant]
     Active Substance: CHOLECALCIFEROL
  6. CALCIUM [Suspect]
     Active Substance: CALCIUM
     Indication: BLOOD CALCIUM ABNORMAL
     Route: 065
  7. DENOSUMAB [Suspect]
     Active Substance: DENOSUMAB
     Indication: POSTMENOPAUSE
     Route: 058
  8. TUMS [Concomitant]
     Active Substance: CALCIUM CARBONATE
  9. COD LIVER OIL [Concomitant]
     Active Substance: COD LIVER OIL
  10. NUTRIENTS NOS [Concomitant]
     Active Substance: UNSPECIFIED INGREDIENT
  11. PANTOPRAZOLE MAGNESIUM [Concomitant]
     Active Substance: PANTOPRAZOLE MAGNESIUM
  12. ROSUVASTATIN CALCIUM. [Concomitant]
     Active Substance: ROSUVASTATIN CALCIUM

REACTIONS (9)
  - Influenza [Unknown]
  - Palpitations [Unknown]
  - Cataract [Unknown]
  - Nausea [Unknown]
  - Pain [Unknown]
  - Malaise [Unknown]
  - Weight decreased [Unknown]
  - Migraine [Unknown]
  - Breast mass [Unknown]
